FAERS Safety Report 13702044 (Version 1)
Quarter: 2017Q2

REPORT INFORMATION
  Report Type: Spontaneous
  Country: CA (occurrence: US)
  Receive Date: 20170629
  Receipt Date: 20170629
  Transmission Date: 20170830
  Serious: No
  Sender: FDA-Public Use
  Company Number: CA-JNJFOC-20160915392

PATIENT
  Age: 79 Year
  Sex: Male
  Weight: 83.92 kg

DRUGS (2)
  1. NIZORAL A-D [Suspect]
     Active Substance: KETOCONAZOLE
     Route: 061
  2. NIZORAL A-D [Suspect]
     Active Substance: KETOCONAZOLE
     Indication: DANDRUFF
     Dosage: A GENEROUS AMOUNT, 2 DIFFERENT TIMES DAYS APART
     Route: 061
     Dates: start: 20160910, end: 20160914

REACTIONS (4)
  - Pruritus [Not Recovered/Not Resolved]
  - Dandruff [Not Recovered/Not Resolved]
  - Product quality issue [Unknown]
  - Skin exfoliation [Not Recovered/Not Resolved]

NARRATIVE: CASE EVENT DATE: 2016
